FAERS Safety Report 14459020 (Version 1)
Quarter: 2018Q1

REPORT INFORMATION
  Report Type: Spontaneous
  Country: BR (occurrence: BR)
  Receive Date: 20180130
  Receipt Date: 20180130
  Transmission Date: 20180509
  Serious: Yes (Other)
  Sender: FDA-Public Use
  Company Number: PHHY2017BR160166

PATIENT
  Age: 64 Year
  Sex: Male
  Weight: 113 kg

DRUGS (12)
  1. ENTRESTO [Suspect]
     Active Substance: SACUBITRIL\VALSARTAN
     Dosage: 200 MG (97/103 MG), BID
     Route: 048
     Dates: start: 20170913
  2. MAREVAN [Concomitant]
     Active Substance: WARFARIN SODIUM
     Indication: ATRIAL FIBRILLATION
  3. ENTRESTO [Suspect]
     Active Substance: SACUBITRIL\VALSARTAN
     Indication: CARDIAC FAILURE
     Dosage: 100 MG (49/51 MG), UNK
     Route: 048
  4. JANUMET [Concomitant]
     Active Substance: METFORMIN HYDROCHLORIDE\SITAGLIPTIN PHOSPHATE
     Indication: DIABETES MELLITUS
     Dosage: 1 DF, QD
     Route: 048
  5. MAREVAN [Concomitant]
     Active Substance: WARFARIN SODIUM
     Indication: PULMONARY EMBOLISM
     Dosage: 2 TABLETS ON ONE DAY AND 1 AND ? ON THE OTHER
     Route: 048
     Dates: start: 2011
  6. HUMULIN NOS [Concomitant]
     Active Substance: INSULIN HUMAN
     Indication: DIABETES MELLITUS
     Dosage: 40 IU IN THE MORNING AND 15 IU AT NIGHT
     Route: 048
  7. CONCOR [Concomitant]
     Active Substance: BISOPROLOL FUMARATE
     Indication: CARDIAC FAILURE
     Dosage: 10 MG, QD
     Route: 048
  8. FUROSEMIDE. [Concomitant]
     Active Substance: FUROSEMIDE
     Indication: CARDIAC FAILURE
     Dosage: UNK UNK, QD
     Route: 048
  9. SPIRONOLACTONE. [Suspect]
     Active Substance: SPIRONOLACTONE
     Indication: CARDIAC FAILURE
     Dosage: 25 MG, QD
     Route: 048
  10. LIPITOR [Concomitant]
     Active Substance: ATORVASTATIN CALCIUM
     Indication: CORONARY ARTERY DISEASE
     Dosage: 20 MG, QD
     Route: 048
  11. DONAREN [Concomitant]
     Active Substance: TRAZODONE HYDROCHLORIDE
     Indication: DEPRESSION
     Dosage: 100 MG, QD
     Route: 048
  12. JARDIANCE [Concomitant]
     Active Substance: EMPAGLIFLOZIN
     Indication: DIABETES MELLITUS
     Dosage: 25 MG, QD
     Route: 048
     Dates: start: 2017

REACTIONS (4)
  - Orthostatic hypotension [Recovering/Resolving]
  - Vitreous floaters [Recovering/Resolving]
  - Blood creatine increased [Recovering/Resolving]
  - Blood potassium increased [Recovering/Resolving]
